FAERS Safety Report 9465859 (Version 1)
Quarter: 2013Q3

REPORT INFORMATION
  Report Type: Report from Study
  Country: CO (occurrence: CO)
  Receive Date: 20130820
  Receipt Date: 20130820
  Transmission Date: 20140515
  Serious: Yes (Death)
  Sender: FDA-Public Use
  Company Number: CO-US-EMD SERONO, INC.-7230790

PATIENT
  Age: 18 Year
  Sex: Female
  Weight: 24 kg

DRUGS (5)
  1. SAIZEN [Suspect]
     Indication: GROWTH HORMONE DEFICIENCY
     Route: 058
     Dates: start: 20121114, end: 20130610
  2. IRON [Suspect]
     Indication: HAEMOGLOBIN ABNORMAL
     Route: 048
     Dates: start: 20080401, end: 20130609
  3. CARBAMAZEPINE [Suspect]
     Indication: CONVULSION
     Route: 048
     Dates: start: 20090101, end: 20130609
  4. PREDNISOLONE [Concomitant]
     Indication: TRANSAMINASES ABNORMAL
     Route: 048
     Dates: start: 20080401, end: 20130609
  5. FOLIC ACID [Concomitant]
     Indication: SICKLE CELL ANAEMIA
     Dosage: 5MF
     Route: 048
     Dates: start: 20080401, end: 20130609

REACTIONS (3)
  - Autoimmune hepatitis [Fatal]
  - Dyspnoea [Fatal]
  - Fluid retention [Fatal]
